FAERS Safety Report 8803039 (Version 1)
Quarter: 2012Q4

REPORT INFORMATION
  Report Type: 
  Country: JP (occurrence: JP)
  Receive Date: 20120924
  Receipt Date: 20120924
  Transmission Date: 20130627
  Serious: Yes (Other)
  Sender: FDA-Public Use
  Company Number: JP-RANBAXY-2012R1-60019

PATIENT
  Age: 8 Year
  Sex: Male

DRUGS (1)
  1. ISOTRETINOIN [Suspect]
     Indication: NEUROBLASTOMA
     Dosage: 160 mg/m^2/day
     Route: 065

REACTIONS (1)
  - Bone marrow oedema [Unknown]
